FAERS Safety Report 9402558 (Version 1)
Quarter: 2013Q3

REPORT INFORMATION
  Report Type: Spontaneous
  Country: US (occurrence: US)
  Receive Date: 20130716
  Receipt Date: 20130716
  Transmission Date: 20140515
  Serious: No
  Sender: FDA-Public Use
  Company Number: US-B.I. PHARMACEUTICALS,INC./RIDGEFIELD-2013-BI-17596BP

PATIENT
  Age: 75 Year
  Sex: Female
  Weight: 69 kg

DRUGS (5)
  1. SPIRIVA [Suspect]
     Indication: ASTHMA
     Dosage: 18 MCG
     Route: 055
     Dates: start: 20130528
  2. LISINOPRIL [Concomitant]
     Indication: HYPERTENSION
     Route: 048
  3. COREG [Concomitant]
     Indication: CARDIAC DISORDER
     Route: 048
  4. SIMVASTATIN [Concomitant]
     Indication: BLOOD CHOLESTEROL INCREASED
     Route: 048
  5. BUDESONIDE [Concomitant]
     Indication: COLITIS
     Route: 048

REACTIONS (1)
  - Dysgeusia [Not Recovered/Not Resolved]
